FAERS Safety Report 8199780-1 (Version None)
Quarter: 2012Q1

REPORT INFORMATION
  Report Type: 
  Country: None (occurrence: None)
  Receive Date: 20120312
  Receipt Date: 20120302
  Transmission Date: 20120608
  Serious: Yes (Hospitalization, Disabling)
  Sender: FDA-Public Use
  Company Number: US-BIOGENIDEC-2011BI036914

PATIENT
  Age: 27 Year
  Sex: Female
  Weight: 50 kg

DRUGS (9)
  1. TYSABRI [Suspect]
     Indication: MULTIPLE SCLEROSIS
     Route: 042
     Dates: start: 20091102
  2. BACLOFEN [Concomitant]
     Route: 037
  3. SENNA [Concomitant]
     Route: 048
  4. CALCIUM WITH VITAMIN D [Concomitant]
     Route: 048
  5. TAMSULOSIN ER [Concomitant]
     Route: 048
  6. VITAMIN D [Concomitant]
     Route: 048
  7. ASPIRIN [Concomitant]
     Route: 048
  8. MULTI-VITAMIN [Concomitant]
     Route: 048
  9. VALTREX [Concomitant]
     Route: 048

REACTIONS (1)
  - SKIN ULCER [None]
